FAERS Safety Report 4295998-9 (Version None)
Quarter: 2004Q1

REPORT INFORMATION
  Report Type: 
  Country: None (occurrence: None)
  Receive Date: 20040212
  Receipt Date: 20040209
  Transmission Date: 20041129
  Serious: Yes (Hospitalization, Other)
  Sender: FDA-Public Use
  Company Number: DEWYE562406FEB04

PATIENT
  Age: 44 Year
  Sex: Female

DRUGS (2)
  1. VENLAFAXINE HCL [Suspect]
     Indication: ANXIETY
     Dosage: 75 MG 1X PER 1 DAY
     Route: 048
  2. VENLAFAXINE HCL [Suspect]
     Indication: PANIC DISORDER
     Dosage: 75 MG 1X PER 1 DAY
     Route: 048

REACTIONS (7)
  - AGITATION [None]
  - ANAPHYLACTIC SHOCK [None]
  - ANXIETY [None]
  - ASTHENIA [None]
  - HYPERHIDROSIS [None]
  - HYPOTENSION [None]
  - TACHYCARDIA [None]
